FAERS Safety Report 9880567 (Version 1)
Quarter: 2014Q1

REPORT INFORMATION
  Report Type: Spontaneous
  Country: ES (occurrence: None)
  Receive Date: 20140205
  Receipt Date: 20140205
  Transmission Date: 20141002
  Serious: Yes (Other)
  Sender: FDA-Public Use
  Company Number: AUR-APL-2014-01142

PATIENT
  Age: 29 Year
  Sex: Female

DRUGS (2)
  1. LEVETIRACETAM [Suspect]
     Indication: EPILEPSY
     Dosage: 2000MG (2000 MG, 1 IN 1 D)
  2. CARBAMAZEPINE [Suspect]
     Indication: EPILEPSY
     Dosage: (600 MG, 1MG, 1 IN 1

REACTIONS (6)
  - Anti-GAD antibody positive [None]
  - Neuropsychiatric lupus [None]
  - No therapeutic response [None]
  - Abdominal pain [None]
  - Hepatotoxicity [None]
  - Transaminases abnormal [None]
